FAERS Safety Report 8782052 (Version 2)
Quarter: 2012Q4

REPORT INFORMATION
  Report Type: 
  Country: US (occurrence: US)
  Receive Date: 20120913
  Receipt Date: 20121018
  Transmission Date: 20130627
  Serious: No
  Sender: FDA-Public Use
  Company Number: US-VERTEX PHARMACEUTICAL INC.-2012-020100

PATIENT
  Age: 58 Year
  Sex: Male

DRUGS (7)
  1. VX-950 [Suspect]
     Indication: HEPATITIS C
     Dosage: 750 mg, tid
     Route: 048
  2. RIBAVIRIN [Concomitant]
     Indication: HEPATITIS C
     Dosage: 200 mg, UNK
  3. PEGASYS [Concomitant]
     Indication: HEPATITIS C
  4. VICODIN [Concomitant]
     Dosage: 500 mg, UNK
  5. TESSALON [Concomitant]
     Dosage: 100 mg, UNK
  6. FLOMAX                             /00889901/ [Concomitant]
     Dosage: 0.4 mg, UNK
  7. XANAX [Concomitant]
     Dosage: 0.5 UNK, UNK

REACTIONS (6)
  - Mood altered [Unknown]
  - Irritability [Unknown]
  - Stomatitis [Unknown]
  - Anorectal discomfort [Unknown]
  - Anal pruritus [Unknown]
  - Proctalgia [Unknown]
